FAERS Safety Report 6055809-8 (Version None)
Quarter: 2009Q1

REPORT INFORMATION
  Report Type: 
  Country: None (occurrence: None)
  Receive Date: 20090128
  Receipt Date: 20090121
  Transmission Date: 20090719
  Serious: Yes (Death)
  Sender: FDA-Public Use
  Company Number: CH-WYE-H07758009

PATIENT
  Sex: Male

DRUGS (2)
  1. TEMSIROLIMUS [Suspect]
     Indication: RENAL CELL CARCINOMA
     Dosage: UNKNOWN
     Dates: start: 20070501, end: 20070101
  2. TEMSIROLIMUS [Suspect]
     Dosage: UNKNOWN
     Dates: start: 20070101, end: 20070101

REACTIONS (1)
  - DISEASE PROGRESSION [None]
